FAERS Safety Report 7432417-5 (Version None)
Quarter: 2011Q2

REPORT INFORMATION
  Report Type: 
  Country: None (occurrence: None)
  Receive Date: 20110422
  Receipt Date: 20110408
  Transmission Date: 20111010
  Serious: No
  Sender: FDA-Public Use
  Company Number: US-B.I. PHARMACEUTICALS,INC./RIDGEFIELD-2011-BP-10440BP

PATIENT
  Sex: Female

DRUGS (14)
  1. PRADAXA [Suspect]
     Indication: ATRIAL FIBRILLATION
     Dosage: 300 MG
     Route: 048
     Dates: start: 20110307
  2. FLONASE [Concomitant]
     Indication: SINUSITIS
     Route: 048
  3. HYDROCODONE BITARTRATE [Concomitant]
     Indication: OSTEOARTHRITIS
     Dosage: 40 MG
     Route: 048
  4. MULTAC [Concomitant]
     Indication: ATRIAL FIBRILLATION
     Route: 048
     Dates: start: 20110307
  5. ALDACTONE [Concomitant]
     Indication: ATRIAL FIBRILLATION
     Dosage: 25 MG
     Route: 048
  6. AMBIEN [Concomitant]
     Indication: INSOMNIA
     Route: 048
  7. M.V.I. [Concomitant]
     Indication: PROPHYLAXIS
     Route: 048
  8. NADOLOL [Concomitant]
     Indication: ATRIAL FIBRILLATION
     Route: 048
  9. FISH OIL [Concomitant]
     Indication: PROPHYLAXIS
     Route: 048
  10. COQ10 [Concomitant]
     Indication: PROPHYLAXIS
     Route: 048
  11. FIBERALL [Concomitant]
     Indication: PROPHYLAXIS
     Route: 048
  12. LASIX [Concomitant]
     Indication: ATRIAL FIBRILLATION
     Dosage: 40 MG
     Route: 048
  13. PROZAC [Concomitant]
     Indication: STRESS
     Dosage: 20 MG
     Route: 048
  14. AMOXICILLIN [Concomitant]
     Indication: SINUSITIS
     Route: 048
     Dates: start: 20110201

REACTIONS (2)
  - DIARRHOEA [None]
  - FATIGUE [None]
